FAERS Safety Report 10583605 (Version 1)
Quarter: 2014Q4

REPORT INFORMATION
  Report Type: Spontaneous
  Country: US (occurrence: None)
  Receive Date: 20141112
  Receipt Date: 20141112
  Transmission Date: 20150529
  Serious: Yes (Hospitalization)
  Sender: FDA-Public Use
  Company Number: 201410217

PATIENT
  Sex: Male

DRUGS (5)
  1. TESTIM [Suspect]
     Active Substance: TESTOSTERONE
     Indication: HYPOGONADISM
     Route: 062
  2. ANDROGEL [Suspect]
     Active Substance: TESTOSTERONE
  3. TESTIM [Suspect]
     Active Substance: TESTOSTERONE
     Indication: BLOOD TESTOSTERONE DECREASED
     Route: 062
  4. ANDRODERM [Suspect]
     Active Substance: TESTOSTERONE
  5. AXIRON [Suspect]
     Active Substance: TESTOSTERONE

REACTIONS (6)
  - Pain [None]
  - Economic problem [None]
  - Anxiety [None]
  - Myocardial infarction [None]
  - Acute coronary syndrome [None]
  - Sexual relationship change [None]

NARRATIVE: CASE EVENT DATE: 201103
